FAERS Safety Report 10020025 (Version 3)
Quarter: 2014Q1

REPORT INFORMATION
  Report Type: Spontaneous
  Country: US (occurrence: US)
  Receive Date: 20140318
  Receipt Date: 20140327
  Transmission Date: 20141002
  Serious: Yes (Death, Hospitalization)
  Sender: FDA-Public Use
  Company Number: US-ACTELION-A-NJ2014-96283

PATIENT
  Age: 82 Year
  Sex: Female

DRUGS (3)
  1. VENTAVIS [Suspect]
     Indication: PULMONARY ARTERIAL HYPERTENSION
     Dosage: UNK
     Route: 055
     Dates: start: 20070705
  2. XARELTO [Suspect]
  3. REVATIO [Concomitant]

REACTIONS (7)
  - Death [Fatal]
  - Fall [Fatal]
  - Hip fracture [Unknown]
  - Haemorrhage [Unknown]
  - Transfusion [Unknown]
  - Cardiac arrest [Unknown]
  - Pneumothorax [Unknown]
